FAERS Safety Report 15528861 (Version 6)
Quarter: 2025Q3

REPORT INFORMATION
  Report Type: Spontaneous
  Country: EU (occurrence: EU)
  Receive Date: 20181020
  Receipt Date: 20250707
  Transmission Date: 20251020
  Serious: Yes (Life-Threatening, Hospitalization, Other)
  Sender: AUROBINDO
  Company Number: EU-AUROBINDO-AUR-APL-2018-051348

PATIENT
  Age: 30 Year
  Sex: Female

DRUGS (16)
  1. SILDENAFIL [Suspect]
     Active Substance: SILDENAFIL
     Indication: Pulmonary arterial hypertension
     Route: 065
  2. CEFTRIAXONE [Suspect]
     Active Substance: CEFTRIAXONE
     Indication: Respiratory tract infection
     Route: 065
  3. CEFTRIAXONE [Suspect]
     Active Substance: CEFTRIAXONE
     Indication: Urinary tract infection
  4. LEVOSIMENDAN [Suspect]
     Active Substance: LEVOSIMENDAN
     Indication: Pulmonary arterial hypertension
     Route: 065
  5. DILTIAZEM [Suspect]
     Active Substance: DILTIAZEM
     Indication: Pulmonary arterial hypertension
     Route: 065
  6. NITRIC OXIDE [Suspect]
     Active Substance: NITRIC OXIDE
     Indication: Pulmonary arterial hypertension
     Route: 065
  7. EPOPROSTENOL [Suspect]
     Active Substance: EPOPROSTENOL
     Indication: Pulmonary arterial hypertension
     Route: 065
  8. EPOPROSTENOL [Suspect]
     Active Substance: EPOPROSTENOL
     Route: 042
  9. ILOPROST [Suspect]
     Active Substance: ILOPROST
     Indication: Pulmonary arterial hypertension
     Route: 065
  10. BOSENTAN [Suspect]
     Active Substance: BOSENTAN
     Indication: Pulmonary arterial hypertension
     Route: 065
  11. VENTAVIS [Suspect]
     Active Substance: ILOPROST
     Indication: Pulmonary arterial hypertension
     Route: 055
  12. NITROUS OXIDE [Concomitant]
     Active Substance: NITROUS OXIDE
     Indication: Pulmonary arterial hypertension
     Route: 065
  13. MILRINONE [Concomitant]
     Active Substance: MILRINONE
     Indication: Pulmonary arterial hypertension
     Route: 065
  14. DILTIAZEM [Concomitant]
     Active Substance: DILTIAZEM
     Indication: Pulmonary arterial hypertension
     Route: 065
  15. LEVOSIMENDAN [Concomitant]
     Active Substance: LEVOSIMENDAN
     Indication: Pulmonary arterial hypertension
     Route: 016
  16. NITRIC OXIDE [Concomitant]
     Active Substance: NITRIC OXIDE
     Indication: Pulmonary arterial hypertension
     Route: 065

REACTIONS (14)
  - Cardiogenic shock [Recovering/Resolving]
  - Haemorrhage urinary tract [Recovering/Resolving]
  - Urinary tract infection [Recovering/Resolving]
  - Respiratory tract haemorrhage [Recovering/Resolving]
  - Respiratory tract infection [Recovering/Resolving]
  - Haemoperitoneum [Recovering/Resolving]
  - Genital haemorrhage [Recovering/Resolving]
  - Caesarean section [Unknown]
  - Premature delivery [Unknown]
  - Off label use [Unknown]
  - Maternal exposure during pregnancy [Unknown]
  - Haemothorax [Unknown]
  - Pulmonary arterial hypertension [Unknown]
  - Drug ineffective for unapproved indication [Unknown]
